FAERS Safety Report 8783460 (Version 4)
Quarter: 2014Q2

REPORT INFORMATION
  Report Type: Report from Study
  Country: GB (occurrence: GB)
  Receive Date: 20120913
  Receipt Date: 20140603
  Transmission Date: 20141212
  Serious: Yes (Hospitalization)
  Sender: FDA-Public Use
  Company Number: PHHO2012GB013211

PATIENT
  Age: 74 Year
  Sex: Female
  Weight: 68.3 kg

DRUGS (10)
  1. PROPRANOLOL [Suspect]
     Indication: HYPERTENSION
     Dosage: 40 MG, BID
     Route: 048
     Dates: start: 2009, end: 20120907
  2. DOXAZOSIN [Suspect]
     Indication: HYPERTENSION
     Dosage: 4 MG, BID
     Route: 048
     Dates: start: 2009, end: 20120907
  3. NIFEDIPINE [Suspect]
     Indication: HYPERTENSION
     Dosage: 90 MG, QD
     Route: 048
     Dates: start: 2009, end: 20120907
  4. BHQ880 [Suspect]
     Indication: PLASMA CELL MYELOMA
     Dosage: 700 MG, QD
     Route: 042
     Dates: start: 20120807
  5. BHQ880 [Suspect]
     Indication: RENAL FAILURE
  6. COMPARATOR BORTEZOMIB [Suspect]
     Dosage: 2.1 MG, UNK
     Dates: start: 20120807, end: 20120904
  7. DEXAMETHASONE COMPARATOR COMP-DEX+ [Suspect]
     Indication: PLASMA CELL MYELOMA
     Dosage: 20 MG, QD
     Route: 048
     Dates: start: 20120807
  8. DEXAMETHASONE COMPARATOR COMP-DEX + [Suspect]
     Indication: RENAL FAILURE
  9. NO TREATMENT RECEIVED [Suspect]
     Indication: PLASMA CELL MYELOMA
     Dosage: NO TREATMENT
  10. NO TREATMENT RECEIVED [Suspect]
     Indication: RENAL FAILURE

REACTIONS (10)
  - Renal failure acute [Recovering/Resolving]
  - Anaemia [None]
  - Dehydration [None]
  - Blood pressure decreased [None]
  - Oxygen saturation decreased [None]
  - Septic shock [None]
  - Diarrhoea [None]
  - Rectal haemorrhage [None]
  - Vomiting [None]
  - Medication error [None]
